FAERS Safety Report 17429599 (Version 1)
Quarter: 2020Q1

REPORT INFORMATION
  Report Type: Spontaneous
  Country: US (occurrence: US)
  Receive Date: 20200203
  Receipt Date: 20200203
  Transmission Date: 20200409
  Serious: Yes (Congenital Anomaly)
  Sender: FDA-Public Use
  Company Number: None

PATIENT
  Sex: Female

DRUGS (1)
  1. TACROLIMUS 1MG STRIDES PHARMA [Suspect]
     Active Substance: TACROLIMUS
     Indication: RENAL TRANSPLANT
     Dosage: ?          OTHER FREQUENCY:AM/PM;?
     Route: 048
     Dates: start: 20190601

REACTIONS (5)
  - Chills [None]
  - Confusional state [None]
  - Abdominal pain [None]
  - Nausea [None]
  - Feeling abnormal [None]
